FAERS Safety Report 5646034-0 (Version None)
Quarter: 2008Q1

REPORT INFORMATION
  Report Type: 
  Country: None (occurrence: None)
  Receive Date: 20080229
  Receipt Date: 20080217
  Transmission Date: 20080703
  Serious: Yes (Other)
  Sender: FDA-Public Use
  Company Number: US-PFIZER INC-2008016263

PATIENT
  Sex: Male

DRUGS (4)
  1. CHANTIX [Suspect]
     Route: 048
  2. ADVAIR DISKUS 100/50 [Concomitant]
  3. SPIRIVA [Concomitant]
  4. DUONEB [Concomitant]

REACTIONS (3)
  - BLOOD PRESSURE INCREASED [None]
  - PALPITATIONS [None]
  - RESPIRATORY RATE INCREASED [None]
